FAERS Safety Report 15893743 (Version 2)
Quarter: 2020Q3

REPORT INFORMATION
  Report Type: Spontaneous
  Country: RU (occurrence: RU)
  Receive Date: 20190131
  Receipt Date: 20200714
  Transmission Date: 20201102
  Serious: Yes (Other)
  Sender: FDA-Public Use
  Company Number: RU-BRISTOL-MYERS SQUIBB COMPANY-BMS-2019-009210

PATIENT
  Age: 37 Year
  Sex: Female

DRUGS (3)
  1. BLINATUMOMAB [Suspect]
     Active Substance: BLINATUMOMAB
     Indication: ACUTE LYMPHOCYTIC LEUKAEMIA
     Dosage: 4?5 CYCLES OF 28 MCG/DAY FOR 4 WEEKS EACH CYCLE
     Route: 065
  2. BLINATUMOMAB [Suspect]
     Active Substance: BLINATUMOMAB
     Dosage: 9 MCG/DAY (OVER 1ST WEEK OF 1ST CYCLE)
     Route: 065
  3. DASATINIB. [Suspect]
     Active Substance: DASATINIB
     Indication: ACUTE LYMPHOCYTIC LEUKAEMIA
     Dosage: 140 MG, PER DAY PER OS
     Route: 065

REACTIONS (3)
  - Intestinal ulcer [Unknown]
  - Cytomegalovirus colitis [Unknown]
  - Intestinal haemorrhage [Unknown]
